FAERS Safety Report 6606416-7 (Version None)
Quarter: 2010Q1

REPORT INFORMATION
  Report Type: 
  Country: None (occurrence: None)
  Receive Date: 20100226
  Receipt Date: 20100216
  Transmission Date: 20100710
  Serious: Yes (Other)
  Sender: FDA-Public Use
  Company Number: CA-JNJCH-2010002044

PATIENT
  Sex: Female

DRUGS (4)
  1. ROLAIDS [Suspect]
     Indication: DYSPEPSIA
     Dosage: TEXT:THREE TO FOUR TABLETS DAILY
     Route: 048
     Dates: start: 20091116, end: 20091227
  2. VENLAFAXINE [Concomitant]
     Indication: DEPRESSION
     Dosage: TEXT:^ONGOING DAILY^
     Route: 065
  3. REACTINE [Concomitant]
     Indication: HYPERSENSITIVITY
     Dosage: TEXT:^LONGTERM AS NEEDED^
     Route: 065
  4. KETOROLAC TROMETHAMINE [Concomitant]
     Indication: TENDONITIS
     Dosage: TEXT:^SHORT TERM AS NEEDED^
     Route: 065
     Dates: start: 20091101

REACTIONS (8)
  - ABDOMINAL PAIN UPPER [None]
  - BONE PAIN [None]
  - CONDITION AGGRAVATED [None]
  - FATIGUE [None]
  - LOSS OF EMPLOYMENT [None]
  - NAUSEA [None]
  - PRODUCT QUALITY ISSUE [None]
  - VOMITING [None]
